FAERS Safety Report 16311171 (Version 1)
Quarter: 2019Q2

REPORT INFORMATION
  Report Type: Spontaneous
  Country: US (occurrence: US)
  Receive Date: 20190514
  Receipt Date: 20190514
  Transmission Date: 20190711
  Serious: No
  Sender: FDA-Public Use
  Company Number: US-MAYNE PHARMA-2018MYN000714

PATIENT

DRUGS (4)
  1. LIOTHYRONINE [Suspect]
     Active Substance: LIOTHYRONINE
     Indication: HYPOTHYROIDISM
     Dosage: Q
     Route: 048
  2. ATENOLOL. [Concomitant]
     Active Substance: ATENOLOL
  3. GAMMA GLOBULIN [Concomitant]
     Active Substance: IMMUNE GLOBULIN NOS
  4. VITAMIN D                          /00107901/ [Concomitant]
     Active Substance: ERGOCALCIFEROL

REACTIONS (3)
  - Fatigue [Not Recovered/Not Resolved]
  - Product solubility abnormal [Not Recovered/Not Resolved]
  - Thyroid function test abnormal [Unknown]

NARRATIVE: CASE EVENT DATE: 201712
